FAERS Safety Report 15041664 (Version 1)
Quarter: 2018Q2

REPORT INFORMATION
  Report Type: Spontaneous
  Country: AU (occurrence: AU)
  Receive Date: 20180621
  Receipt Date: 20180621
  Transmission Date: 20180711
  Serious: Yes (Hospitalization)
  Sender: FDA-Public Use
  Company Number: AU-ORION CORPORATION ORION PHARMA-ENT 2018-0065

PATIENT

DRUGS (2)
  1. APOMINE [Concomitant]
     Active Substance: APOMORPHINE HYDROCHLORIDE
     Route: 065
  2. ENTACAPONE (TRADE NAME UNKNOWN) [Suspect]
     Active Substance: ENTACAPONE
     Indication: PRODUCT USED FOR UNKNOWN INDICATION
     Route: 065

REACTIONS (1)
  - Colitis [Unknown]
